FAERS Safety Report 9830544 (Version 2)
Quarter: 2014Q1

REPORT INFORMATION
  Report Type: Report from Study
  Country: US (occurrence: US)
  Receive Date: 20140120
  Receipt Date: 20140211
  Transmission Date: 20141002
  Serious: Yes (Hospitalization)
  Sender: FDA-Public Use
  Company Number: US-BRISTOL-MYERS SQUIBB COMPANY-19989441

PATIENT
  Age: 67 Year
  Sex: Female
  Weight: 106.57 kg

DRUGS (11)
  1. ABATACEPT SUBQ INJECTION 125MG/ML [Suspect]
     Dosage: 1 DF:125 MG/ML.
     Route: 058
     Dates: start: 2013
  2. PREDNISONE [Concomitant]
  3. LISINOPRIL [Concomitant]
  4. OMEPRAZOLE [Concomitant]
  5. MIRAPEX [Concomitant]
  6. EXELON [Concomitant]
     Route: 061
  7. ULORIC [Concomitant]
  8. METHOTREXATE [Concomitant]
     Dosage: 4 TABS ONE DAY A WEEK
  9. FOLIC ACID [Concomitant]
     Route: 048
  10. LEUCOVORIN CALCIUM [Concomitant]
  11. PROBIOTICA [Concomitant]

REACTIONS (7)
  - Dyspnoea [Unknown]
  - Fatigue [Unknown]
  - Muscle spasms [Unknown]
  - Oropharyngeal pain [Unknown]
  - Weight increased [Unknown]
  - Muscle contracture [Not Recovered/Not Resolved]
  - Musculoskeletal stiffness [Not Recovered/Not Resolved]
